FAERS Safety Report 14921966 (Version 1)
Quarter: 2018Q2

REPORT INFORMATION
  Report Type: Spontaneous
  Country: US (occurrence: US)
  Receive Date: 20180522
  Receipt Date: 20180522
  Transmission Date: 20180711
  Serious: No
  Sender: FDA-Public Use
  Company Number: US-B.I. PHARMACEUTICALS,INC./RIDGEFIELD-2018-BI-027003

PATIENT
  Age: 82 Year
  Sex: Male

DRUGS (4)
  1. ZOLPIDEM [Concomitant]
     Active Substance: ZOLPIDEM\ZOLPIDEM TARTRATE
     Indication: INSOMNIA
     Route: 065
  2. PRADAXA [Suspect]
     Active Substance: DABIGATRAN ETEXILATE MESYLATE
     Indication: ATRIAL FIBRILLATION
  3. PRESERVISION [Concomitant]
     Active Substance: MINERALS\VITAMINS
     Indication: MACULAR DEGENERATION
     Route: 065
  4. PRADAXA [Suspect]
     Active Substance: DABIGATRAN ETEXILATE MESYLATE
     Indication: CEREBROVASCULAR ACCIDENT PROPHYLAXIS
     Dosage: 1 CAPSULE TWICE A DAY;  FORM STRENGTH: 150 MG; ; ACTION(S) TAKEN WITH PRODUCT: DOSE NOT CHANGED
     Route: 048
     Dates: start: 201704

REACTIONS (2)
  - Insomnia [Not Recovered/Not Resolved]
  - Anxiety [Not Recovered/Not Resolved]

NARRATIVE: CASE EVENT DATE: 201704
